FAERS Safety Report 9278757 (Version 1)
Quarter: 2013Q2

REPORT INFORMATION
  Report Type: Spontaneous
  Country: US (occurrence: US)
  Receive Date: 20130508
  Receipt Date: 20130508
  Transmission Date: 20140414
  Serious: Yes (Other)
  Sender: FDA-Public Use
  Company Number: US-ABBOTT-13P-163-1084151-00

PATIENT
  Age: 35 Year
  Sex: Female

DRUGS (3)
  1. HUMIRA [Suspect]
     Indication: PSORIASIS
     Dates: start: 201211, end: 201211
  2. HUMIRA [Suspect]
     Dates: end: 20130405
  3. LEVOTHYROID [Concomitant]
     Indication: HYPOTHYROIDISM

REACTIONS (3)
  - Jaundice [Recovered/Resolved]
  - Blood bilirubin increased [Not Recovered/Not Resolved]
  - Autoimmune hepatitis [Not Recovered/Not Resolved]
